FAERS Safety Report 5881566-1 (Version None)
Quarter: 2008Q3

REPORT INFORMATION
  Report Type: 
  Country: None (occurrence: None)
  Receive Date: 20080912
  Receipt Date: 20080703
  Transmission Date: 20090109
  Serious: No
  Sender: FDA-Public Use
  Company Number: US-ABBOTT-08P-163-0460719-00

PATIENT
  Sex: Female
  Weight: 57.204 kg

DRUGS (1)
  1. HUMIRA [Suspect]
     Indication: RHEUMATOID ARTHRITIS
     Route: 058
     Dates: start: 20080208, end: 20080602

REACTIONS (4)
  - EPISTAXIS [None]
  - HEPATIC ENZYME INCREASED [None]
  - HEPATITIS B ANTIBODY POSITIVE [None]
  - HEPATITIS C [None]
